FAERS Safety Report 9532612 (Version 1)
Quarter: 2013Q2

REPORT INFORMATION
  Report Type: Spontaneous
  Country: US (occurrence: None)
  Receive Date: 20130418
  Receipt Date: 20130418
  Transmission Date: 20140414
  Serious: No
  Sender: FDA-Public Use
  Company Number: 2013PROUSA02471

PATIENT
  Age: 67 Year
  Sex: Male
  Weight: 88.4 kg

DRUGS (5)
  1. PROVENGE (SIPULEUCEL-T) SUSPENSION, 250ML [Suspect]
     Indication: PROSTATE CANCER METASTATIC
     Dosage: SINGLE
     Route: 042
     Dates: start: 20121130, end: 20121130
  2. DECADRON (DEXAMETHASONE) [Concomitant]
  3. MEGACE (MEGESTROL ACETATE) [Concomitant]
  4. FENTANYL PATCH (FENTANYL CITRATE) [Concomitant]
  5. FLUTAMIDE (FLUTAMIDE) [Concomitant]

REACTIONS (2)
  - Steroid therapy [None]
  - Product measured potency issue [None]
